FAERS Safety Report 24731617 (Version 1)
Quarter: 2024Q4

REPORT INFORMATION
  Report Type: Spontaneous
  Country: GB (occurrence: GB)
  Receive Date: 20241213
  Receipt Date: 20241213
  Transmission Date: 20250114
  Serious: Yes (Other)
  Sender: MYLAN
  Company Number: None

PATIENT
  Age: 26 Year
  Sex: Male

DRUGS (1)
  1. FINASTERIDE [Suspect]
     Active Substance: FINASTERIDE
     Indication: Alopecia
     Dosage: UNK
     Route: 065

REACTIONS (3)
  - Depressed mood [Not Recovered/Not Resolved]
  - Anxiety [Not Recovered/Not Resolved]
  - Tachyphrenia [Recovering/Resolving]

NARRATIVE: CASE EVENT DATE: 20241203
